FAERS Safety Report 8299621-8 (Version None)
Quarter: 2012Q2

REPORT INFORMATION
  Report Type: 
  Country: None (occurrence: None)
  Receive Date: 20120419
  Receipt Date: 20120410
  Transmission Date: 20120825
  Serious: Yes (Death)
  Sender: FDA-Public Use
  Company Number: FR-GLAXOSMITHKLINE-B0777028A

PATIENT
  Sex: Male

DRUGS (8)
  1. ARIXTRA [Suspect]
     Indication: PULMONARY EMBOLISM
     Dosage: 7.5MG PER DAY
     Route: 058
     Dates: start: 20111204, end: 20111211
  2. LOSARTAN POTASSIUM AND HYDROCHLOROTHIAZIDE [Concomitant]
     Route: 048
  3. TANGANIL [Concomitant]
     Route: 048
  4. LASIX [Concomitant]
     Dosage: 20MG PER DAY
     Route: 048
  5. ASPIRIN [Concomitant]
  6. ZOPICLONE [Concomitant]
     Route: 048
  7. SPIRIVA [Concomitant]
     Route: 055
  8. PREDNISONE TAB [Concomitant]
     Route: 048

REACTIONS (3)
  - ANAEMIA [None]
  - HYPOVOLAEMIC SHOCK [None]
  - MUSCLE HAEMORRHAGE [None]
